FAERS Safety Report 4989023-1 (Version None)
Quarter: 2006Q2

REPORT INFORMATION
  Report Type: 
  Country: None (occurrence: None)
  Receive Date: 20060425
  Receipt Date: 20060411
  Transmission Date: 20061013
  Serious: No
  Sender: FDA-Public Use
  Company Number: 2006-140994-NL

PATIENT
  Age: 45 Year
  Sex: Female

DRUGS (1)
  1. NUVARING [Suspect]
     Indication: HOT FLUSH
     Dosage: DF

REACTIONS (2)
  - APPLICATION SITE SCAR [None]
  - VAGINAL INFLAMMATION [None]
